FAERS Safety Report 5735074-9 (Version None)
Quarter: 2008Q2

REPORT INFORMATION
  Report Type: 
  Country: None (occurrence: None)
  Receive Date: 20080512
  Receipt Date: 20080502
  Transmission Date: 20081010
  Serious: Yes (Congenital Anomaly)
  Sender: FDA-Public Use
  Company Number: GB-ABBOTT-08P-167-0438932-00

PATIENT
  Sex: Female

DRUGS (1)
  1. VALPROIC ACID [Suspect]
     Indication: DRUG EXPOSURE DURING PREGNANCY
     Route: 064

REACTIONS (23)
  - ABDOMINAL PAIN [None]
  - ASOCIAL BEHAVIOUR [None]
  - CARDIAC MURMUR [None]
  - CONGENITAL FOOT MALFORMATION [None]
  - CONGENITAL NOSE MALFORMATION [None]
  - CONSTIPATION [None]
  - COORDINATION ABNORMAL [None]
  - DRUG EXPOSURE DURING PREGNANCY [None]
  - DYSGRAPHIA [None]
  - DYSMORPHISM [None]
  - EAR MALFORMATION [None]
  - FOETAL ANTICONVULSANT SYNDROME [None]
  - FOOT DEFORMITY [None]
  - FREQUENT BOWEL MOVEMENTS [None]
  - INTESTINAL FUNCTIONAL DISORDER [None]
  - LEARNING DISORDER [None]
  - LIGAMENT LAXITY [None]
  - LIP DISORDER [None]
  - NEONATAL RESPIRATORY DISTRESS SYNDROME [None]
  - PECTUS EXCAVATUM [None]
  - SKULL MALFORMATION [None]
  - SLEEP DISORDER [None]
  - TACHYPNOEA [None]
